FAERS Safety Report 25507612 (Version 1)
Quarter: 2025Q3

REPORT INFORMATION
  Report Type: Spontaneous
  Country: GB (occurrence: GB)
  Receive Date: 20250703
  Receipt Date: 20250703
  Transmission Date: 20251020
  Serious: Yes (Life-Threatening, Hospitalization, Other)
  Sender: JOHNSON AND JOHNSON
  Company Number: None

PATIENT
  Age: 33 Year
  Sex: Male

DRUGS (5)
  1. INFLIXIMAB [Suspect]
     Active Substance: INFLIXIMAB
     Indication: Product used for unknown indication
     Route: 041
     Dates: end: 20250403
  2. Adcal-D3 chewable tablets all fruits [Concomitant]
     Indication: Product used for unknown indication
  3. Octasa 800mg MR gastro-resistant tablets (Tillotts Pharma Ltd) [Concomitant]
     Indication: Product used for unknown indication
  4. Nefopam 30mg tablets [Concomitant]
     Indication: Product used for unknown indication
  5. PREDNISOLONE [Concomitant]
     Active Substance: PREDNISOLONE
     Indication: Product used for unknown indication

REACTIONS (3)
  - Cardiac failure [Not Recovered/Not Resolved]
  - Myocarditis [Recovered/Resolved]
  - Pneumonitis [Unknown]
